FAERS Safety Report 7568490-3 (Version None)
Quarter: 2011Q2

REPORT INFORMATION
  Report Type: 
  Country: None (occurrence: None)
  Receive Date: 20110617
  Receipt Date: 20110606
  Transmission Date: 20111010
  Serious: Yes (Disabling)
  Sender: FDA-Public Use
  Company Number: 2011AP000401

PATIENT
  Age: 76 Year
  Sex: Male

DRUGS (8)
  1. AMLODIPINE BESYLATE [Suspect]
     Indication: HYPERTENSION
     Dosage: 10 MG, QD. PO
     Route: 048
  2. LISINOPRIL [Concomitant]
  3. FINASTERIDE [Concomitant]
  4. ASPIRIN [Concomitant]
  5. FELODIPINE [Suspect]
     Dosage: 5 MG, PO,QD
     Route: 048
     Dates: start: 20101219, end: 20110201
  6. ALFUZOSIN (ALFUZOSIN) [Concomitant]
  7. ATORVASTATIN [Concomitant]
  8. BISOPROLOL FUMARATE [Concomitant]

REACTIONS (8)
  - MYALGIA [None]
  - PAIN [None]
  - DRUG INTERACTION [None]
  - MUSCULOSKELETAL PAIN [None]
  - DRUG PRESCRIBING ERROR [None]
  - RED BLOOD CELL COUNT DECREASED [None]
  - DRUG DISPENSING ERROR [None]
  - WRONG DRUG ADMINISTERED [None]
